FAERS Safety Report 15218831 (Version 2)
Quarter: 2018Q4

REPORT INFORMATION
  Report Type: Spontaneous
  Country: JP (occurrence: JP)
  Receive Date: 20180731
  Receipt Date: 20180803
  Transmission Date: 20190204
  Serious: Yes (Other)
  Sender: FDA-Public Use
  Company Number: JP-TEVA-2018-JP-003917J

PATIENT
  Age: 63 Year
  Sex: Male

DRUGS (11)
  1. BAYASPIRIN [Suspect]
     Active Substance: ASPIRIN
     Indication: CEREBRAL INFARCTION
     Dosage: 100 MILLIGRAM DAILY;
     Route: 048
  2. BETAHISTINE [Concomitant]
     Active Substance: BETAHISTINE
     Route: 048
  3. KARY UNI [Concomitant]
     Active Substance: PIRENOXINE
     Route: 065
  4. LANSOPRAZOLE OD TABLET 15MG TAKEDA TEVA [Suspect]
     Active Substance: LANSOPRAZOLE
     Indication: PROPHYLAXIS
     Dosage: 15 MILLIGRAM DAILY;
     Route: 048
     Dates: end: 20180709
  5. PLAVIX [Suspect]
     Active Substance: CLOPIDOGREL BISULFATE
     Indication: CEREBRAL INFARCTION
     Dosage: 25 MILLIGRAM DAILY;
     Route: 048
     Dates: end: 20180709
  6. AMVALO [Concomitant]
     Route: 048
  7. VALSARTAN. [Concomitant]
     Active Substance: VALSARTAN
     Route: 048
  8. ONGLYZA [Concomitant]
     Active Substance: SAXAGLIPTIN HYDROCHLORIDE
     Route: 048
  9. HORDAZOL TABLET 100 [Suspect]
     Active Substance: CILOSTAZOL
     Indication: PRODUCT USED FOR UNKNOWN INDICATION
     Route: 065
     Dates: end: 20180709
  10. SOFTEAR [Concomitant]
     Active Substance: CYANOCOBALAMIN
     Route: 065
  11. TAPROS [Concomitant]
     Route: 065

REACTIONS (3)
  - Pruritus [Unknown]
  - Toxic skin eruption [Recovering/Resolving]
  - Drug eruption [Recovering/Resolving]

NARRATIVE: CASE EVENT DATE: 20170830
